FAERS Safety Report 13360631 (Version 6)
Quarter: 2018Q1

REPORT INFORMATION
  Report Type: Report from Study
  Country: US (occurrence: US)
  Receive Date: 20170322
  Receipt Date: 20180314
  Transmission Date: 20180508
  Serious: Yes (Hospitalization, Other)
  Sender: FDA-Public Use
  Company Number: US-ACTELION-A-US2015-114599

PATIENT
  Age: 65 Year
  Sex: Male

DRUGS (51)
  1. AUGMENTIN [Concomitant]
     Active Substance: AMOXICILLIN\CLAVULANATE POTASSIUM
     Dosage: UNK
     Dates: start: 20161027
  2. LEVOTHYROXINE SODIUM. [Concomitant]
     Active Substance: LEVOTHYROXINE SODIUM
     Dosage: UNK
     Dates: start: 20170927
  3. METOPROLOL SUCCINATE. [Concomitant]
     Active Substance: METOPROLOL SUCCINATE
     Dosage: UNK
     Dates: start: 20170927
  4. LEVOFLOXACIN. [Concomitant]
     Active Substance: LEVOFLOXACIN
     Dosage: UNK
     Dates: start: 20170927
  5. METHYLPREDNISOLONE. [Concomitant]
     Active Substance: METHYLPREDNISOLONE
     Dosage: UNK
     Dates: start: 20170927
  6. ATORVASTATIN [Concomitant]
     Active Substance: ATORVASTATIN
     Dosage: UNK
     Dates: start: 20120328
  7. LOVENOX [Concomitant]
     Active Substance: ENOXAPARIN SODIUM
  8. MORPHINE SULFATE. [Concomitant]
     Active Substance: MORPHINE SULFATE
  9. PERCOCET [Concomitant]
     Active Substance: ACETAMINOPHEN\OXYCODONE HYDROCHLORIDE
  10. PHENERGAN [Concomitant]
     Active Substance: PROMETHAZINE HYDROCHLORIDE
  11. METOPROLOL TARTRATE. [Concomitant]
     Active Substance: METOPROLOL TARTRATE
  12. INSULIN ASPART [Concomitant]
     Active Substance: INSULIN ASPART
  13. OPSUMIT [Suspect]
     Active Substance: MACITENTAN
     Indication: CHRONIC OBSTRUCTIVE PULMONARY DISEASE
  14. DILTIAZEM. [Concomitant]
     Active Substance: DILTIAZEM
     Dosage: UNK
     Dates: start: 20160331
  15. INSULINE GLARGINE [Concomitant]
     Active Substance: INSULIN GLARGINE
     Dosage: UNK
     Dates: start: 20170927
  16. SULFAMETHOXAZOLE AND TRIMETHOPRIM [Concomitant]
     Active Substance: SULFAMETHOXAZOLE\TRIMETHOPRIM
  17. PANTOPRAZOLE SODIUM. [Concomitant]
     Active Substance: PANTOPRAZOLE SODIUM
  18. PREDNISONE. [Concomitant]
     Active Substance: PREDNISONE
  19. SOLU-MEDROL [Concomitant]
     Active Substance: METHYLPREDNISOLONE SODIUM SUCCINATE
  20. ZOFRAN [Concomitant]
     Active Substance: ONDANSETRON HYDROCHLORIDE
  21. ZOSYN [Concomitant]
     Active Substance: PIPERACILLIN SODIUM\TAZOBACTAM SODIUM
  22. CYCLOBENZAPRINE. [Concomitant]
     Active Substance: CYCLOBENZAPRINE
     Dosage: UNK
     Dates: start: 20150922
  23. LEVOTHYROXINE. [Concomitant]
     Active Substance: LEVOTHYROXINE
     Dosage: UNK
     Dates: start: 20120412
  24. ATROVENT [Concomitant]
     Active Substance: IPRATROPIUM BROMIDE
     Dosage: UNK
  25. DUONEB [Concomitant]
     Active Substance: ALBUTEROL SULFATE\IPRATROPIUM BROMIDE
     Dosage: UNK
  26. FENTANYL. [Concomitant]
     Active Substance: FENTANYL
     Dosage: UNK
     Dates: start: 20170927
  27. HYDROCODONE BITARTRATE AND ACETAMINOPHEN [Concomitant]
     Active Substance: ACETAMINOPHEN\HYDROCODONE BITARTRATE
     Dosage: UNK
     Dates: start: 20170927
  28. LINEZOLID. [Concomitant]
     Active Substance: LINEZOLID
     Dosage: UNK
     Dates: start: 20170927
  29. MEROPENEM. [Concomitant]
     Active Substance: MEROPENEM
     Dosage: UNK
     Dates: start: 20170927
  30. DEXTROMETHORPHAN [Concomitant]
     Active Substance: DEXTROMETHORPHAN
     Dosage: UNK
     Dates: start: 20170927
  31. RESTORIL [Concomitant]
     Active Substance: TEMAZEPAM
     Dosage: UNK
     Dates: start: 20170927
  32. ALBUTEROL W/IPRATROPIUM [Concomitant]
     Active Substance: ALBUTEROL\IPRATROPIUM
     Dosage: UNK
     Dates: start: 20120112
  33. AUGMENTIN [Concomitant]
     Active Substance: AMOXICILLIN\CLAVULANATE POTASSIUM
     Dosage: UNK
     Dates: start: 20170328
  34. INSULINE LISPRO [Concomitant]
     Dosage: UNK
     Dates: start: 20170927
  35. METFORMIN [Concomitant]
     Active Substance: METFORMIN HYDROCHLORIDE
  36. POTASSIUM CHLORIDE. [Concomitant]
     Active Substance: POTASSIUM CHLORIDE
  37. VANCOMYCIN [Concomitant]
     Active Substance: VANCOMYCIN
  38. MIDAZOLAM [Concomitant]
     Active Substance: MIDAZOLAM HYDROCHLORIDE
     Dosage: UNK
     Dates: start: 20170927
  39. OPSUMIT [Suspect]
     Active Substance: MACITENTAN
     Indication: PULMONARY HYPERTENSION
     Dosage: UNK
     Route: 048
     Dates: start: 20141011
  40. BUDESONIDE. [Concomitant]
     Active Substance: BUDESONIDE
     Dosage: UNK
     Dates: start: 20150922
  41. METOPROLOL. [Concomitant]
     Active Substance: METOPROLOL
     Dosage: UNK
     Dates: start: 20141218
  42. DIPHENHYDRAMINE HCL [Concomitant]
     Active Substance: DIPHENHYDRAMINE HYDROCHLORIDE
     Dosage: UNK
  43. GUAIFENESINE [Concomitant]
     Dosage: UNK
     Dates: start: 20170927
  44. MAGNESIUM OXIDE. [Concomitant]
     Active Substance: MAGNESIUM OXIDE
     Dosage: UNK
     Dates: start: 20170927
  45. TEMAZEPAM. [Concomitant]
     Active Substance: TEMAZEPAM
  46. AMOXICILLIN/CLAVULANIC ACID [Concomitant]
     Active Substance: AMOXICILLIN\CLAVULANIC ACID
     Dosage: UNK
     Dates: start: 20170927
  47. AZITHROMYCIN ANHYDROUS. [Concomitant]
     Active Substance: AZITHROMYCIN ANHYDROUS
     Dosage: UNK
     Dates: start: 20170927
  48. PROTONIX [Concomitant]
     Active Substance: PANTOPRAZOLE SODIUM
     Dosage: UNK
     Dates: start: 20170927
  49. DALIRESP [Concomitant]
     Active Substance: ROFLUMILAST
     Dosage: UNK
     Dates: start: 20140922
  50. OMEPRAZOLE. [Concomitant]
     Active Substance: OMEPRAZOLE
  51. ZOLPIDEM [Concomitant]
     Active Substance: ZOLPIDEM\ZOLPIDEM TARTRATE

REACTIONS (32)
  - Chronic obstructive pulmonary disease [Recovered/Resolved]
  - Cough [Recovered/Resolved]
  - Dyspnoea [Recovered/Resolved]
  - Candida infection [Not Recovered/Not Resolved]
  - Bronchitis [Recovered/Resolved]
  - Sputum culture positive [Unknown]
  - Pulmonary mass [Recovered/Resolved with Sequelae]
  - Acute respiratory failure [Recovered/Resolved]
  - Transfusion [Unknown]
  - Platelet transfusion [Unknown]
  - Respiratory distress [Recovered/Resolved]
  - Small cell lung cancer metastatic [Recovered/Resolved]
  - Stenotrophomonas infection [Recovered/Resolved]
  - Pneumonia [Recovered/Resolved]
  - Lung adenocarcinoma recurrent [Recovered/Resolved with Sequelae]
  - Packed red blood cell transfusion [Recovering/Resolving]
  - Renal cell carcinoma [Not Recovered/Not Resolved]
  - Pyrexia [Recovered/Resolved]
  - Asthenia [Recovered/Resolved]
  - Pneumonia pseudomonal [Recovered/Resolved]
  - Metastases to kidney [Unknown]
  - Pseudomonas test positive [Recovered/Resolved]
  - Tachypnoea [Recovered/Resolved]
  - Anaemia [Recovering/Resolving]
  - Chest pain [Recovered/Resolved]
  - Productive cough [Recovered/Resolved]
  - Disease progression [Recovered/Resolved]
  - Condition aggravated [Recovered/Resolved]
  - Pulmonary congestion [Recovered/Resolved]
  - Bronchial secretion retention [Recovered/Resolved]
  - Secretion discharge [Recovered/Resolved]
  - Drug intolerance [Unknown]

NARRATIVE: CASE EVENT DATE: 20150120
